FAERS Safety Report 9104887 (Version 1)
Quarter: 2013Q1

REPORT INFORMATION
  Report Type: Spontaneous
  Country: US (occurrence: US)
  Receive Date: 20130219
  Receipt Date: 20130219
  Transmission Date: 20140127
  Serious: Yes (Life-Threatening, Other)
  Sender: FDA-Public Use
  Company Number: PHEH2013US004030

PATIENT
  Age: 25 Year
  Sex: Male
  Weight: 78.14 kg

DRUGS (1)
  1. CLOZAPINE [Suspect]
     Dosage: 300 MG, QD
     Route: 048

REACTIONS (5)
  - Muscle disorder [Unknown]
  - Muscular weakness [Unknown]
  - Asthenia [Unknown]
  - Libido decreased [Unknown]
  - Headache [Unknown]
